FAERS Safety Report 21927414 (Version 1)
Quarter: 2023Q1

REPORT INFORMATION
  Report Type: Spontaneous
  Country: KR (occurrence: KR)
  Receive Date: 20230130
  Receipt Date: 20230130
  Transmission Date: 20230418
  Serious: Yes (Death)
  Sender: FDA-Public Use
  Company Number: KR-MYLANLABS-2023M1010540

PATIENT
  Age: 62 Year
  Sex: Female

DRUGS (8)
  1. ETOPOSIDE [Suspect]
     Active Substance: ETOPOSIDE
     Indication: Endometrial stromal sarcoma
     Dosage: UNK
     Route: 065
  2. ETOPOSIDE [Suspect]
     Active Substance: ETOPOSIDE
     Indication: Ovarian germ cell teratoma benign
  3. DOXORUBICIN [Suspect]
     Active Substance: DOXORUBICIN
     Indication: Endometrial stromal sarcoma
     Dosage: 75 MILLIGRAM/SQ. METER, Q3W, FOR THREE COURSES
     Route: 065
  4. DOXORUBICIN [Suspect]
     Active Substance: DOXORUBICIN
     Indication: Ovarian germ cell teratoma benign
  5. CISPLATIN [Suspect]
     Active Substance: CISPLATIN
     Indication: Endometrial stromal sarcoma
     Dosage: UNK
     Route: 065
  6. CISPLATIN [Suspect]
     Active Substance: CISPLATIN
     Indication: Ovarian germ cell teratoma benign
  7. IFOSFAMIDE [Suspect]
     Active Substance: IFOSFAMIDE
     Indication: Endometrial stromal sarcoma
     Dosage: UNK
     Route: 065
  8. IFOSFAMIDE [Suspect]
     Active Substance: IFOSFAMIDE
     Indication: Ovarian germ cell teratoma benign

REACTIONS (1)
  - Drug ineffective [Fatal]
